FAERS Safety Report 8178664-9 (Version None)
Quarter: 2012Q1

REPORT INFORMATION
  Report Type: 
  Country: None (occurrence: None)
  Receive Date: 20120301
  Receipt Date: 20120220
  Transmission Date: 20120608
  Serious: Yes (Hospitalization)
  Sender: FDA-Public Use
  Company Number: JP-ASTRAZENECA-2012SE13266

PATIENT
  Age: 36 Year
  Sex: Male

DRUGS (6)
  1. AMOBAN [Suspect]
     Route: 048
  2. ZONISAMIDE [Suspect]
     Route: 048
  3. SEROQUEL [Suspect]
     Route: 048
  4. MIRTAZAPINE [Suspect]
     Route: 048
  5. DEPAKENE [Suspect]
     Route: 048
  6. SEROQUEL [Suspect]
     Route: 048

REACTIONS (2)
  - MULTIPLE DRUG OVERDOSE [None]
  - SOMNOLENCE [None]
